FAERS Safety Report 6197853-6 (Version None)
Quarter: 2009Q2

REPORT INFORMATION
  Report Type: 
  Country: None (occurrence: None)
  Receive Date: 20090521
  Receipt Date: 20090514
  Transmission Date: 20091009
  Serious: Yes (Hospitalization, Other)
  Sender: FDA-Public Use
  Company Number: US-ASTRAZENECA-2008UW22622

PATIENT
  Age: 53 Year
  Sex: Female

DRUGS (6)
  1. ARIMIDEX [Suspect]
     Indication: BREAST CANCER
     Route: 048
     Dates: start: 20040101
  2. FEXOFENADINE HCL [Concomitant]
  3. MELOXICAM [Concomitant]
  4. FLUTICASONE PROPIONATE [Concomitant]
     Route: 045
  5. ZOMETA [Concomitant]
     Route: 042
  6. XANAX [Concomitant]

REACTIONS (13)
  - ARTHRALGIA [None]
  - BLOOD CHOLESTEROL INCREASED [None]
  - BREAST PAIN [None]
  - CARPAL TUNNEL SYNDROME [None]
  - DEAFNESS [None]
  - HIP ARTHROPLASTY [None]
  - HOT FLUSH [None]
  - INSOMNIA [None]
  - MUSCULOSKELETAL STIFFNESS [None]
  - NECK PAIN [None]
  - OSTEOARTHRITIS [None]
  - OSTEOPOROSIS [None]
  - VULVOVAGINAL DRYNESS [None]
